FAERS Safety Report 7067343-7 (Version None)
Quarter: 2010Q4

REPORT INFORMATION
  Report Type: 
  Country: None (occurrence: None)
  Receive Date: 20101022
  Receipt Date: 20101022
  Transmission Date: 20110411
  Serious: Yes (Hospitalization)
  Sender: FDA-Public Use
  Company Number: None

PATIENT
  Sex: Male
  Weight: 10.4 kg

DRUGS (5)
  1. PEG-L-ASPARAGINASE (PEGASPARGASE,ONCOSPAR) [Suspect]
     Dosage: 1297.5 UNIT
     Dates: end: 20100927
  2. PREDNISONE [Suspect]
     Dosage: 12 MG
     Dates: end: 20100929
  3. VINCRISTINE SULFATE [Suspect]
     Dosage: .8MG
     Dates: end: 20100924
  4. CYTARABINE [Suspect]
     Dosage: 30 MG
     Dates: end: 20100924
  5. DAUNORUBICIN HCL [Suspect]
     Dosage: 13 MG
     Dates: end: 20100924

REACTIONS (2)
  - BLOOD GLUCOSE INCREASED [None]
  - DRUG TOXICITY [None]
